FAERS Safety Report 15682661 (Version 1)
Quarter: 2018Q4

REPORT INFORMATION
  Report Type: Spontaneous
  Country: US (occurrence: US)
  Receive Date: 20181203
  Receipt Date: 20181203
  Transmission Date: 20190205
  Serious: Yes (Hospitalization)
  Sender: FDA-Public Use
  Company Number: US-OTSUKA-2018_019523

PATIENT
  Sex: Male

DRUGS (5)
  1. ABILIFY MAINTENA [Suspect]
     Active Substance: ARIPIPRAZOLE
     Indication: AFFECTIVE DISORDER
  2. ABILIFY [Suspect]
     Active Substance: ARIPIPRAZOLE
     Indication: SCHIZOPHRENIA
     Dosage: 5 MG - 400 MG, QD
     Route: 065
     Dates: start: 201101, end: 2018
  3. ABILIFY MAINTENA [Suspect]
     Active Substance: ARIPIPRAZOLE
     Indication: PSYCHOTIC DISORDER
     Dosage: 400 MG, EVERY 4 WEEKS
     Route: 030
  4. ABILIFY [Suspect]
     Active Substance: ARIPIPRAZOLE
     Indication: MAJOR DEPRESSION
  5. ABILIFY [Suspect]
     Active Substance: ARIPIPRAZOLE
     Indication: ANXIETY

REACTIONS (15)
  - Delirium tremens [Unknown]
  - Mental disorder [Unknown]
  - Treatment failure [Unknown]
  - Neuropsychiatric symptoms [Unknown]
  - Panic attack [Unknown]
  - Gambling disorder [Recovered/Resolved]
  - Overdose [Unknown]
  - Injury [Unknown]
  - Emotional distress [Unknown]
  - Treatment noncompliance [Unknown]
  - Condition aggravated [Unknown]
  - Product use in unapproved indication [Unknown]
  - Obsessive-compulsive disorder [Unknown]
  - Tremor [Unknown]
  - Economic problem [Unknown]

NARRATIVE: CASE EVENT DATE: 2011
